FAERS Safety Report 7558423-8 (Version None)
Quarter: 2011Q2

REPORT INFORMATION
  Report Type: 
  Country: None (occurrence: None)
  Receive Date: 20110620
  Receipt Date: 20110617
  Transmission Date: 20111010
  Serious: Yes (Death)
  Sender: FDA-Public Use
  Company Number: PHHY2011DE26825

PATIENT
  Age: 65 Year
  Sex: Female

DRUGS (1)
  1. ZOMETA [Suspect]
     Indication: BONE DISORDER
     Dosage: 4 MG/ 5ML
     Route: 042

REACTIONS (2)
  - DEATH [None]
  - AGEUSIA [None]
